FAERS Safety Report 8970130 (Version 2)
Quarter: 2012Q4

REPORT INFORMATION
  Report Type: Report from Study
  Country: SE (occurrence: SE)
  Receive Date: 20121218
  Receipt Date: 20121228
  Transmission Date: 20130627
  Serious: Yes (Hospitalization)
  Sender: FDA-Public Use
  Company Number: SE-AMGEN-SWECT2012080011

PATIENT
  Age: 80 Year
  Sex: Female

DRUGS (6)
  1. DENOSUMAB [Suspect]
     Indication: OSTEOPOROSIS POSTMENOPAUSAL
     Dosage: 60 mug, q6mo
     Route: 058
     Dates: start: 2004
  2. IMOVANE [Concomitant]
     Dosage: 5 mg, prn
     Route: 048
     Dates: start: 20101203
  3. OMEPRAZOLE [Concomitant]
     Dosage: 20 mg, prn
     Dates: start: 20090216
  4. MINIFOM [Concomitant]
     Dosage: 200 mg, tid
     Dates: start: 20010426
  5. BEHEPAN [Concomitant]
     Dosage: 1 mg, qd
  6. SIFROL [Concomitant]
     Dosage: 0.09 mg, qd
     Dates: start: 201012

REACTIONS (2)
  - Radius fracture [Not Recovered/Not Resolved]
  - Concussion [Recovered/Resolved]
